FAERS Safety Report 7153498-2 (Version None)
Quarter: 2010Q4

REPORT INFORMATION
  Report Type: 
  Country: None (occurrence: None)
  Receive Date: 20101213
  Receipt Date: 20101206
  Transmission Date: 20110411
  Serious: Yes (Death)
  Sender: FDA-Public Use
  Company Number: B0687593A

PATIENT
  Age: 56 Year
  Sex: Female

DRUGS (5)
  1. LAMOTRIGINE [Suspect]
     Dosage: 150MG PER DAY
     Route: 048
     Dates: start: 20040901, end: 20050520
  2. VALPROATE SODIUM [Suspect]
     Dosage: 1G PER DAY
     Route: 048
     Dates: start: 20040801, end: 20050520
  3. QUETIAPINE FUMARATE [Suspect]
     Dosage: 750MG PER DAY
     Route: 048
     Dates: start: 20040701, end: 20050520
  4. CIPRAMIL [Suspect]
     Indication: DEPRESSION
     Dosage: 40MG PER DAY
     Route: 048
     Dates: start: 20050401, end: 20050520
  5. LISINOPRIL [Concomitant]
     Route: 048

REACTIONS (2)
  - ASPHYXIA [None]
  - COMPLETED SUICIDE [None]
